FAERS Safety Report 9159833 (Version 6)
Quarter: 2013Q2

REPORT INFORMATION
  Report Type: Spontaneous
  Country: AU (occurrence: None)
  Receive Date: 20130219
  Receipt Date: 20130605
  Transmission Date: 20140414
  Serious: Yes (Hospitalization)
  Sender: FDA-Public Use
  Company Number: ACO_34285_2013

PATIENT
  Age: 47 Year
  Sex: Female

DRUGS (7)
  1. FAMPRIDINE [Suspect]
     Indication: MULTIPLE SCLEROSIS
     Route: 048
     Dates: start: 20120712
  2. TYSABRI (NATALIZUMAB) [Concomitant]
  3. BACLOFEN (BACLOFEN) [Concomitant]
  4. TEGRETOL (CARBAMAZEPINE) [Concomitant]
  5. DITROPAN (OXYBUTYNIN HYDROCHLORIDE) [Concomitant]
  6. VITAMIN D (VITAMIN D) [Concomitant]
  7. COLOXYL WITH SENNA (DOCUSATE SODIUM, SENNOSIDE A+B) [Concomitant]

REACTIONS (12)
  - Fall [None]
  - Foot fracture [None]
  - Ankle fracture [None]
  - Joint injury [None]
  - Avulsion fracture [None]
  - Drug dose omission [None]
  - Ligament sprain [None]
  - Nausea [None]
  - Vomiting [None]
  - Diarrhoea [None]
  - Gastroenteritis norovirus [None]
  - Urinary tract infection [None]
